FAERS Safety Report 8594999-X (Version None)
Quarter: 2012Q3

REPORT INFORMATION
  Report Type: 
  Country: None (occurrence: None)
  Receive Date: 20120815
  Receipt Date: 20120807
  Transmission Date: 20120928
  Serious: Yes (Hospitalization, Other)
  Sender: FDA-Public Use
  Company Number: PHEH2012US012653

PATIENT
  Sex: Female

DRUGS (18)
  1. GILENYA [Suspect]
     Indication: RELAPSING-REMITTING MULTIPLE SCLEROSIS
     Dosage: 0.5 MG, QD
     Route: 048
     Dates: start: 20110601, end: 20120529
  2. GILENYA [Suspect]
     Dosage: 0.5 MG, QD
     Route: 048
     Dates: start: 20120627
  3. ALBUTEROL SULFATE AND IPRATROPIUM BROMIDE [Concomitant]
     Dosage: 3 ML, 6QD
  4. MOTRIN [Concomitant]
     Dosage: 200 MG, PRN
     Route: 048
  5. CALCIUM W/VITAMIN D NOS [Concomitant]
     Dosage: 1 DF, DAILY
     Route: 048
  6. POTASSIUM BICARBONATE [Concomitant]
     Dosage: 25 MEQ, QD
     Route: 048
  7. IOPAMIDOL [Concomitant]
     Dosage: 100 ML, QD
     Route: 042
  8. ADVIL [Concomitant]
     Dosage: 200 MG, PRN
     Route: 048
  9. OXYBUTYNIN CHLORIDE [Concomitant]
     Dosage: 10 MG, DAILY
     Route: 048
  10. TRYPSIN-BALSAM-CASTOR OIL [Concomitant]
     Dosage: UNK UKN, TID
     Route: 061
  11. ENOXAPARIN [Concomitant]
     Dosage: 30 MG, BID
     Route: 058
  12. FAMPRIDINE [Concomitant]
     Dosage: 1 DF, DAILY
     Route: 048
  13. SERTRALINE HYDROCHLORIDE [Concomitant]
     Dosage: 50 MG, DAILY
     Route: 048
  14. CALCIUM CARBONATE W/VITAMIN D NOS [Concomitant]
     Dosage: 1 DF, DAILY
     Route: 048
  15. NYSTATIN [Concomitant]
     Dosage: UNK UKN, BID
     Route: 061
  16. ROCEPHIN [Concomitant]
     Dosage: 1 G, QD
     Route: 042
  17. POTASSIUM CHLORIDE [Concomitant]
     Dosage: 25 MEQ, QD
     Route: 048
  18. EXCEDRIN (MIGRAINE) [Concomitant]
     Indication: MIGRAINE
     Dosage: UNK UKN, PRN
     Route: 048

REACTIONS (26)
  - HOT FLUSH [None]
  - MALAISE [None]
  - VITAMIN D DEFICIENCY [None]
  - GAIT DISTURBANCE [None]
  - MUSCLE SPASMS [None]
  - CONFUSIONAL STATE [None]
  - PNEUMONIA [None]
  - PRODUCTIVE COUGH [None]
  - JOINT RANGE OF MOTION DECREASED [None]
  - FATIGUE [None]
  - PYREXIA [None]
  - MENTAL STATUS CHANGES [None]
  - HYPOKALAEMIA [None]
  - RASH [None]
  - PO2 DECREASED [None]
  - NASAL CONGESTION [None]
  - BLOOD PRESSURE DECREASED [None]
  - UHTHOFF'S PHENOMENON [None]
  - ASTHENIA [None]
  - RESPIRATORY DISTRESS [None]
  - ATAXIA [None]
  - DYSPNOEA [None]
  - WOUND [None]
  - FALL [None]
  - DYSARTHRIA [None]
  - URINARY TRACT INFECTION [None]
